FAERS Safety Report 9142846 (Version 1)
Quarter: 2013Q1

REPORT INFORMATION
  Report Type: Not Available
  Country: US (occurrence: US)
  Receive Date: 20130306
  Receipt Date: 20130306
  Transmission Date: 20140127
  Serious: No
  Sender: FDA-Public Use
  Company Number: US-ENDO PHARMACEUTICALS INC.-OPER20090184

PATIENT
  Age: 23 Year
  Sex: Male

DRUGS (3)
  1. OPANA ER 20MG [Suspect]
     Indication: OFF LABEL USE
     Dosage: 20 MG
     Route: 048
  2. UNAMED OPIATES [Concomitant]
  3. STREET DRUGS [Concomitant]

REACTIONS (5)
  - Incorrect route of drug administration [Unknown]
  - Feeling abnormal [Unknown]
  - Drug abuse [Unknown]
  - Euphoric mood [Unknown]
  - Intentional drug misuse [Unknown]
